FAERS Safety Report 9846317 (Version 1)
Quarter: 2014Q1

REPORT INFORMATION
  Report Type: Spontaneous
  Country: US (occurrence: US)
  Receive Date: 20140127
  Receipt Date: 20140127
  Transmission Date: 20141002
  Serious: Yes (Death, Hospitalization, Other)
  Sender: FDA-Public Use
  Company Number: US-AMGEN-USASP2014004782

PATIENT
  Age: 63 Year
  Sex: Male

DRUGS (4)
  1. NEULASTA [Suspect]
     Indication: LEUKOPENIA
     Dosage: UNK
     Route: 065
     Dates: start: 20130618, end: 20130618
  2. VELCADE [Concomitant]
     Dosage: UNK UNK, QWK
  3. DEXAMETHASONE [Concomitant]
     Dosage: 40 MG, QWK
  4. COUMADIN                           /00014802/ [Concomitant]
     Dosage: UNK

REACTIONS (3)
  - Death [Fatal]
  - Acute respiratory failure [Unknown]
  - Pain [Unknown]
